FAERS Safety Report 15011623 (Version 1)
Quarter: 2018Q2

REPORT INFORMATION
  Report Type: Spontaneous
  Country: US (occurrence: US)
  Receive Date: 20180529
  Receipt Date: 20180529
  Transmission Date: 20180711
  Serious: Yes (Other)
  Sender: FDA-Public Use
  Company Number: None

PATIENT
  Age: 50 Year
  Sex: Female

DRUGS (1)
  1. NOVOLOG [Suspect]
     Active Substance: INSULIN ASPART
     Indication: TYPE 1 DIABETES MELLITUS
     Dates: start: 20180424, end: 20180508

REACTIONS (6)
  - Liquid product physical issue [None]
  - Product colour issue [None]
  - Product quality issue [None]
  - Blood glucose increased [None]
  - Product deposit [None]
  - Drug ineffective [None]

NARRATIVE: CASE EVENT DATE: 20180508
